FAERS Safety Report 18384510 (Version 3)
Quarter: 2020Q4

REPORT INFORMATION
  Report Type: Spontaneous
  Country: US (occurrence: US)
  Receive Date: 20201014
  Receipt Date: 20201130
  Transmission Date: 20210114
  Serious: No
  Sender: FDA-Public Use
  Company Number: US-AMGEN-USASP2020165245

PATIENT
  Age: 59 Year
  Sex: Female
  Weight: 67.7 kg

DRUGS (3)
  1. NEULASTA [Suspect]
     Active Substance: PEGFILGRASTIM
     Dosage: 01 DOSE (6 MILLIGRAM, Q3WK)
     Route: 058
     Dates: start: 20201009
  2. NEULASTA [Suspect]
     Active Substance: PEGFILGRASTIM
     Indication: NEUTROPENIA
     Dosage: 01 DOSE (6 MILLIGRAM, Q3WK)
     Route: 058
     Dates: start: 20201009
  3. NEULASTA [Suspect]
     Active Substance: PEGFILGRASTIM
     Dosage: 01 DOSE (6 MILLIGRAM, Q3WK)
     Route: 058
     Dates: start: 20201009

REACTIONS (1)
  - Device malfunction [Unknown]

NARRATIVE: CASE EVENT DATE: 20201009
